FAERS Safety Report 5774697-8 (Version None)
Quarter: 2008Q2

REPORT INFORMATION
  Report Type: 
  Country: None (occurrence: None)
  Receive Date: 20080617
  Receipt Date: 20080613
  Transmission Date: 20081010
  Serious: Yes (Other)
  Sender: FDA-Public Use
  Company Number: US-RANBAXY-2008US-15840

PATIENT

DRUGS (2)
  1. ISOTRETINOIN [Suspect]
     Indication: DRUG USE FOR UNKNOWN INDICATION
     Dosage: 20 MG, TID
     Route: 048
     Dates: start: 20080114, end: 20080612
  2. ISOTRETINOIN [Suspect]
     Dosage: 40 MG, UNK
     Dates: start: 20080114, end: 20080612

REACTIONS (1)
  - PREGNANCY [None]
